FAERS Safety Report 24971913 (Version 2)
Quarter: 2025Q2

REPORT INFORMATION
  Report Type: Spontaneous
  Country: CN (occurrence: CN)
  Receive Date: 20250214
  Receipt Date: 20250422
  Transmission Date: 20250717
  Serious: Yes (Other)
  Sender: NOVARTIS
  Company Number: CN-002147023-NVSC2025CN024471

PATIENT
  Age: 63 Year
  Sex: Female

DRUGS (2)
  1. OFATUMUMAB [Suspect]
     Active Substance: OFATUMUMAB
     Indication: Secondary cerebellar degeneration
     Route: 058
  2. OFATUMUMAB [Suspect]
     Active Substance: OFATUMUMAB
     Route: 058

REACTIONS (5)
  - Secondary cerebellar degeneration [Recovering/Resolving]
  - Dizziness [Recovering/Resolving]
  - Gait disturbance [Recovering/Resolving]
  - Symptom recurrence [Unknown]
  - Off label use [Unknown]
